FAERS Safety Report 8054000-3 (Version None)
Quarter: 2012Q1

REPORT INFORMATION
  Report Type: 
  Country: None (occurrence: None)
  Receive Date: 20120118
  Receipt Date: 20120109
  Transmission Date: 20120608
  Serious: Yes (Other)
  Sender: FDA-Public Use
  Company Number: CA-ASTRAZENECA-2012SE01926

PATIENT
  Age: 72 Year
  Sex: Female

DRUGS (6)
  1. HYDROCHLOROTHIAZIDE [Concomitant]
     Indication: HYPERTENSION
     Route: 048
  2. BISOPROLOL FUMARATE [Concomitant]
     Indication: HYPERTENSION
     Route: 048
  3. DOMPERIDONE [Concomitant]
     Indication: HIATUS HERNIA
     Route: 048
  4. CRESTOR [Suspect]
     Route: 048
     Dates: start: 20111101, end: 20120108
  5. CRESTOR [Suspect]
     Indication: BLOOD CHOLESTEROL ABNORMAL
     Route: 048
     Dates: start: 20110101, end: 20110101
  6. ACETAMINOPHEN [Concomitant]

REACTIONS (7)
  - BLOOD CHOLESTEROL DECREASED [None]
  - COUGH [None]
  - MUSCULOSKELETAL PAIN [None]
  - BLOOD URINE PRESENT [None]
  - MYALGIA [None]
  - BACK PAIN [None]
  - DYSPNOEA [None]
